FAERS Safety Report 15157434 (Version 1)
Quarter: 2018Q3

REPORT INFORMATION
  Report Type: Spontaneous
  Country: FR (occurrence: FR)
  Receive Date: 20180718
  Receipt Date: 20180718
  Transmission Date: 20181010
  Serious: Yes (Death)
  Sender: FDA-Public Use
  Company Number: FR-TEVA-2018-FR-927994

PATIENT
  Age: 31 Year
  Sex: Male
  Weight: 95 kg

DRUGS (19)
  1. ONDANSETRON ACCORD [Suspect]
     Active Substance: ONDANSETRON
     Indication: NAUSEA
     Dosage: 8 MILLIGRAM DAILY;
     Route: 042
     Dates: start: 20180523, end: 20180606
  2. TRIMEBUTINE [Concomitant]
     Active Substance: TRIMEBUTINE
  3. METHYLPREDNISOLONE. [Concomitant]
     Active Substance: METHYLPREDNISOLONE
  4. ETOPOSIDE. [Suspect]
     Active Substance: ETOPOSIDE
     Indication: B-CELL LYMPHOMA
     Route: 042
     Dates: start: 20180524, end: 20180524
  5. HOLOXAN [Suspect]
     Active Substance: IFOSFAMIDE
     Indication: B-CELL LYMPHOMA
     Route: 042
     Dates: start: 20180525, end: 20180525
  6. CUBICIN [Suspect]
     Active Substance: DAPTOMYCIN
     Indication: PROPHYLAXIS
     Dosage: 900 MILLIGRAM DAILY;
     Route: 042
     Dates: start: 20180529, end: 20180607
  7. NPLATE [Concomitant]
     Active Substance: ROMIPLOSTIM
  8. ACIDE ZOLEDRONIQUE MONOHYDRATE [Concomitant]
  9. ZELITREX [Suspect]
     Active Substance: VALACYCLOVIR HYDROCHLORIDE
     Indication: PROPHYLAXIS
     Dosage: 5000 MILLIGRAM DAILY;
     Route: 048
     Dates: start: 20180525, end: 20180604
  10. IMIPENEM AND CILASTATIN [Suspect]
     Active Substance: CILASTATIN SODIUM\IMIPENEM
     Indication: PROPHYLAXIS
     Dosage: 1500 MILLIGRAM DAILY;
     Route: 042
     Dates: start: 20180526, end: 20180607
  11. ARACYTINE [Suspect]
     Active Substance: CYTARABINE
     Indication: B-CELL LYMPHOMA
     Route: 042
     Dates: start: 20180525, end: 20180526
  12. FLUIMUCIL [Concomitant]
     Active Substance: ACETYLCYSTEINE
  13. GRANOCYTE [Concomitant]
     Active Substance: LENOGRASTIM
  14. MIDAZOLAM [Concomitant]
     Active Substance: MIDAZOLAM HYDROCHLORIDE
  15. METRONIDAZOLE. [Suspect]
     Active Substance: METRONIDAZOLE
     Indication: PROPHYLAXIS
     Dosage: 3 DOSAGE FORMS DAILY;
     Route: 042
     Dates: start: 20180518, end: 20180607
  16. EXACYL [Concomitant]
     Active Substance: TRANEXAMIC ACID
  17. VANCOMYCINE SANDOZ 500 MG, POUDRE POUR SOLUTION POUR PERFUSION [Suspect]
     Active Substance: VANCOMYCIN HYDROCHLORIDE
     Indication: PROPHYLAXIS
     Dosage: 500 MILLIGRAM DAILY;
     Dates: start: 20180518, end: 20180608
  18. OXYCODONE [Concomitant]
     Active Substance: OXYCODONE
  19. SCOPOLAMINE [Concomitant]
     Active Substance: SCOPOLAMINE

REACTIONS (1)
  - Hepatitis cholestatic [Fatal]

NARRATIVE: CASE EVENT DATE: 20180529
